FAERS Safety Report 9904415 (Version 2)
Quarter: 2014Q1

REPORT INFORMATION
  Report Type: Spontaneous
  Country: US (occurrence: US)
  Receive Date: 20140218
  Receipt Date: 20140226
  Transmission Date: 20141002
  Serious: Yes (Other)
  Sender: FDA-Public Use
  Company Number: US-009507513-1402USA005630

PATIENT
  Sex: Female
  Weight: 79.82 kg

DRUGS (1)
  1. IMPLANON [Suspect]
     Dosage: UNK
     Route: 059
     Dates: start: 20120604

REACTIONS (5)
  - Exploratory operation [Not Recovered/Not Resolved]
  - Menstruation irregular [Not Recovered/Not Resolved]
  - Medical device complication [Not Recovered/Not Resolved]
  - Alopecia [Not Recovered/Not Resolved]
  - Device difficult to use [Not Recovered/Not Resolved]
